FAERS Safety Report 15013268 (Version 1)
Quarter: 2018Q2

REPORT INFORMATION
  Report Type: Spontaneous
  Country: US (occurrence: US)
  Receive Date: 20180614
  Receipt Date: 20180614
  Transmission Date: 20180711
  Serious: Yes (Other)
  Sender: FDA-Public Use
  Company Number: US-GEHC-2018CSU002282

PATIENT
  Sex: Female

DRUGS (1)
  1. GADOLINIUM (UNSPECIFIED) [Suspect]
     Active Substance: GADOLINIUM
     Indication: PRODUCT USED FOR UNKNOWN INDICATION
     Route: 065

REACTIONS (7)
  - Cognitive disorder [Not Recovered/Not Resolved]
  - Gadolinium deposition disease [Recovering/Resolving]
  - Pain in extremity [Not Recovered/Not Resolved]
  - Pain in extremity [Recovering/Resolving]
  - Headache [Not Recovered/Not Resolved]
  - Pain [Not Recovered/Not Resolved]
  - Bone pain [Recovering/Resolving]
